FAERS Safety Report 20379162 (Version 5)
Quarter: 2022Q3

REPORT INFORMATION
  Report Type: Report from Study
  Country: AR (occurrence: AR)
  Receive Date: 20220126
  Receipt Date: 20220918
  Transmission Date: 20221027
  Serious: Yes (Hospitalization, Other)
  Sender: FDA-Public Use
  Company Number: AR-NOVARTISPH-NVSC2022AR015159

PATIENT
  Age: 34 Year
  Sex: Female

DRUGS (2)
  1. KISQALI [Suspect]
     Active Substance: RIBOCICLIB
     Indication: Breast cancer metastatic
     Dosage: 600 MG, QD
     Route: 048
     Dates: start: 20211111
  2. KISQALI [Suspect]
     Active Substance: RIBOCICLIB
     Dosage: 600 MG
     Route: 065

REACTIONS (8)
  - Device related infection [Unknown]
  - Mass [Recovered/Resolved]
  - Device failure [Unknown]
  - Cellulitis [Unknown]
  - Neutropenia [Unknown]
  - Chest pain [Recovered/Resolved]
  - Pyrexia [Recovered/Resolved]
  - Pyrexia [Unknown]

NARRATIVE: CASE EVENT DATE: 20220101
